FAERS Safety Report 9271713 (Version 1)
Quarter: 2013Q2

REPORT INFORMATION
  Report Type: Spontaneous
  Country: FR (occurrence: FR)
  Receive Date: 20130506
  Receipt Date: 20130506
  Transmission Date: 20140414
  Serious: Yes (Hospitalization)
  Sender: FDA-Public Use
  Company Number: FR-PFIZER INC-2013135228

PATIENT
  Age: 32 Year
  Sex: Female

DRUGS (4)
  1. RELPAX [Suspect]
     Indication: MIGRAINE
     Dosage: UNK
     Route: 048
  2. RELPAX [Suspect]
     Dosage: UP TO 4 TABLETS WEEKLY
     Route: 048
  3. DOLIPRANE [Suspect]
     Indication: MIGRAINE
     Dosage: UNK
     Route: 048
  4. LAMALINE [Suspect]
     Indication: MIGRAINE
     Dosage: UNK

REACTIONS (5)
  - Medication overuse headache [Not Recovered/Not Resolved]
  - Drug withdrawal syndrome [Unknown]
  - Vomiting [Unknown]
  - Sleep disorder [Unknown]
  - Irritability [Unknown]
